FAERS Safety Report 4935832-4 (Version None)
Quarter: 2006Q1

REPORT INFORMATION
  Report Type: 
  Country: None (occurrence: None)
  Receive Date: 20060302
  Receipt Date: 20060207
  Transmission Date: 20060701
  Serious: Yes (Hospitalization, Other)
  Sender: FDA-Public Use
  Company Number: US_0509122430

PATIENT
  Sex: Female
  Weight: 74.8 kg

DRUGS (2)
  1. ZYPREXA [Suspect]
  2. GLIPIZIDE [Concomitant]

REACTIONS (3)
  - DIABETES MELLITUS [None]
  - PANCREATECTOMY [None]
  - PANCREATIC PSEUDOCYST [None]
